FAERS Safety Report 9649488 (Version 1)
Quarter: 2013Q4

REPORT INFORMATION
  Report Type: Spontaneous
  Country: GB (occurrence: GB)
  Receive Date: 20131028
  Receipt Date: 20131028
  Transmission Date: 20140711
  Serious: Yes (Other)
  Sender: FDA-Public Use
  Company Number: GB-TEVA-439675ISR

PATIENT
  Age: 69 Year
  Sex: Female

DRUGS (13)
  1. ENALAPRIL [Suspect]
     Indication: PRODUCT USED FOR UNKNOWN INDICATION
     Dosage: 20 MILLIGRAM DAILY;
     Route: 065
  2. BUMETANIDE [Suspect]
     Indication: PRODUCT USED FOR UNKNOWN INDICATION
     Dosage: 2 MILLIGRAM DAILY;
     Route: 065
  3. ROACTEMRA [Suspect]
     Indication: RHEUMATOID ARTHRITIS
     Dosage: STRENGTH : 20 MG PER ML
     Route: 042
     Dates: start: 20120531, end: 20130816
  4. METHOTREXATE [Concomitant]
     Indication: CARDIAC DISORDER
  5. DIGOXIN [Concomitant]
     Dosage: 125 MILLIGRAM DAILY;
     Route: 048
  6. PREDNISOLON [Concomitant]
  7. METFORMIN [Concomitant]
     Indication: DEPRESSION
     Dosage: 2 GRAM DAILY;
     Route: 048
  8. LANSOPRAZOLE [Concomitant]
     Dosage: 60 MILLIGRAM DAILY;
     Route: 065
  9. ATORVASTATIN [Concomitant]
     Route: 065
  10. FLUOXETINE [Concomitant]
     Route: 065
  11. ALLOPURINOL [Concomitant]
     Route: 065
  12. REPAGLINIDE [Concomitant]
     Route: 065
  13. ALENDRONIC ACID [Concomitant]
     Route: 065

REACTIONS (4)
  - Haemoglobin decreased [Unknown]
  - Renal impairment [Recovering/Resolving]
  - Urinary tract infection [Unknown]
  - Glomerular filtration rate decreased [Recovering/Resolving]
